FAERS Safety Report 11054508 (Version 3)
Quarter: 2015Q2

REPORT INFORMATION
  Report Type: Spontaneous
  Country: JP (occurrence: JP)
  Receive Date: 20150422
  Receipt Date: 20150630
  Transmission Date: 20150821
  Serious: Yes (Hospitalization)
  Sender: FDA-Public Use
  Company Number: JP-JNJFOC-20150411413

PATIENT
  Age: 78 Year
  Sex: Male
  Weight: 40 kg

DRUGS (1)
  1. ZYTIGA [Suspect]
     Active Substance: ABIRATERONE ACETATE
     Indication: PROSTATE CANCER
     Route: 048
     Dates: start: 20150317, end: 20150407

REACTIONS (5)
  - Respiratory disorder [Recovered/Resolved]
  - Hypercapnia [Recovered/Resolved]
  - Asthenia [Recovered/Resolved]
  - Adrenal insufficiency [Recovered/Resolved]
  - Drug dose omission [Unknown]

NARRATIVE: CASE EVENT DATE: 2015
